FAERS Safety Report 11362380 (Version 1)
Quarter: 2015Q3

REPORT INFORMATION
  Report Type: Spontaneous
  Country: SI (occurrence: SI)
  Receive Date: 20150810
  Receipt Date: 20150810
  Transmission Date: 20151125
  Serious: Yes (Other)
  Sender: FDA-Public Use
  Company Number: SI-FRESENIUS KABI-FK201503794

PATIENT
  Age: 73 Year
  Sex: Male

DRUGS (6)
  1. GEMCITABINE [Suspect]
     Active Substance: GEMCITABINE\GEMCITABINE HYDROCHLORIDE
     Indication: PLEURAL MESOTHELIOMA
     Route: 041
     Dates: start: 20150716, end: 20150716
  2. PLIVIT D3 [Concomitant]
     Active Substance: CHOLECALCIFEROL
     Route: 048
  3. VENTOLIN [Concomitant]
     Active Substance: ALBUTEROL SULFATE
     Indication: ASTHMA
  4. TRAMAL [Concomitant]
     Active Substance: TRAMADOL
     Indication: PAIN
     Route: 048
  5. DORETA [Concomitant]
     Route: 048
  6. CALCIUM CALVIVE [Concomitant]
     Route: 048

REACTIONS (4)
  - Nausea [Unknown]
  - Off label use [Unknown]
  - Oxygen saturation decreased [Unknown]
  - Bronchospasm [Unknown]

NARRATIVE: CASE EVENT DATE: 20150716
